FAERS Safety Report 8043711-1 (Version None)
Quarter: 2012Q1

REPORT INFORMATION
  Report Type: 
  Country: None (occurrence: None)
  Receive Date: 20120113
  Receipt Date: 20120105
  Transmission Date: 20120608
  Serious: Yes (Other)
  Sender: FDA-Public Use
  Company Number: ES-ABBOTT-12P-144-0890135-00

PATIENT
  Age: 66 Year
  Sex: Female

DRUGS (1)
  1. FENOFIBRATE [Suspect]
     Indication: HYPERTRIGLYCERIDAEMIA
     Dosage: 30 TABLETS
     Route: 048
     Dates: start: 20111015, end: 20111201

REACTIONS (1)
  - PULMONARY THROMBOSIS [None]
